FAERS Safety Report 24432877 (Version 1)
Quarter: 2024Q4

REPORT INFORMATION
  Report Type: Spontaneous
  Country: GB (occurrence: GB)
  Receive Date: 20241014
  Receipt Date: 20241014
  Transmission Date: 20250115
  Serious: Yes (Hospitalization)
  Sender: PERRIGO
  Company Number: GB-MHRA-CER-RGZ-58150571

PATIENT
  Age: 33 Year
  Sex: Male

DRUGS (1)
  1. ACETAMINOPHEN [Suspect]
     Active Substance: ACETAMINOPHEN
     Indication: Product used for unknown indication
     Dosage: 1 G FOUR TIMES A DAY ORAL
     Route: 048
     Dates: start: 20240920, end: 20240920

REACTIONS (1)
  - Abdominal pain [Recovered/Resolved]
